FAERS Safety Report 6306540-2 (Version None)
Quarter: 2009Q3

REPORT INFORMATION
  Report Type: 
  Country: None (occurrence: None)
  Receive Date: 20090810
  Receipt Date: 20090727
  Transmission Date: 20100115
  Serious: Yes (Life-Threatening, Hospitalization)
  Sender: FDA-Public Use
  Company Number: 2009S1013305

PATIENT
  Age: 66 Year
  Sex: Female

DRUGS (8)
  1. ALENDRONIC ACID (ALENDRONIC ACID) [Suspect]
     Indication: OSTEOPOROSIS
     Dosage: 70 MG; ORAL
     Route: 048
     Dates: start: 20080101
  2. ASPIRIN [Concomitant]
  3. FLUOXETINE [Concomitant]
  4. GABAPENTIN [Concomitant]
  5. OMEPRAZOLE [Concomitant]
  6. SIMVASTATIN [Concomitant]
  7. LEVOTHYROXINE SODIUM [Concomitant]
  8. TRAMADOL HCL [Concomitant]

REACTIONS (1)
  - OESOPHAGEAL ADENOCARCINOMA [None]
